FAERS Safety Report 13782641 (Version 1)
Quarter: 2017Q3

REPORT INFORMATION
  Report Type: Spontaneous
  Country: US (occurrence: US)
  Receive Date: 20170724
  Receipt Date: 20170724
  Transmission Date: 20171127
  Serious: No
  Sender: FDA-Public Use
  Company Number: US-BAYER-2017-132287

PATIENT
  Age: 75 Year
  Sex: Male
  Weight: 93.97 kg

DRUGS (3)
  1. ATENOLOL. [Concomitant]
     Active Substance: ATENOLOL
  2. MIRALAX [Suspect]
     Active Substance: POLYETHYLENE GLYCOL 3350
     Indication: GASTROINTESTINAL DISORDER
     Dosage: 1 DF, PRN
     Route: 048
  3. ALKA-SELTZER [ACETYLSALICYLIC ACID] [Concomitant]

REACTIONS (4)
  - Expired product administered [Unknown]
  - Abdominal pain [Recovered/Resolved]
  - Infrequent bowel movements [Recovered/Resolved]
  - Gastrointestinal motility disorder [Recovered/Resolved]

NARRATIVE: CASE EVENT DATE: 20170708
